FAERS Safety Report 19951957 (Version 1)
Quarter: 2021Q4

REPORT INFORMATION
  Report Type: Spontaneous
  Country: US (occurrence: US)
  Receive Date: 20211013
  Receipt Date: 20211013
  Transmission Date: 20220303
  Serious: Yes (Hospitalization, Other)
  Sender: FDA-Public Use
  Company Number: 2021A763821

PATIENT
  Age: 953 Month
  Sex: Male
  Weight: 94.3 kg

DRUGS (5)
  1. BYDUREON BCISE [Suspect]
     Active Substance: EXENATIDE
     Indication: Blood glucose increased
     Route: 058
     Dates: start: 20211006
  2. BYDUREON [Suspect]
     Active Substance: EXENATIDE
     Indication: Blood glucose increased
     Route: 058
     Dates: start: 2015
  3. ASPIRIN [Concomitant]
     Active Substance: ASPIRIN
  4. PLAVIX [Concomitant]
     Active Substance: CLOPIDOGREL BISULFATE
  5. METFORMIN [Concomitant]
     Active Substance: METFORMIN HYDROCHLORIDE
     Dosage: 5 TABLETS OF 500 MG EVERY DAY

REACTIONS (8)
  - Myocardial infarction [Recovered/Resolved]
  - Malignant melanoma [Recovered/Resolved]
  - Blood disorder [Not Recovered/Not Resolved]
  - Arterial disorder [Unknown]
  - Dysphagia [Not Recovered/Not Resolved]
  - Weight increased [Unknown]
  - Injection site pain [Recovered/Resolved]
  - Injection site haemorrhage [Unknown]

NARRATIVE: CASE EVENT DATE: 20210601
